FAERS Safety Report 6171524-4 (Version None)
Quarter: 2009Q2

REPORT INFORMATION
  Report Type: 
  Country: None (occurrence: None)
  Receive Date: 20090424
  Receipt Date: 20080429
  Transmission Date: 20091009
  Serious: Yes (Life-Threatening, Hospitalization)
  Sender: FDA-Public Use
  Company Number: WAES 0804USA06403

PATIENT
  Sex: Female

DRUGS (5)
  1. SINGULAIR [Suspect]
     Indication: RHINITIS ALLERGIC
     Dosage: 10 MG/DAILY/PO
     Route: 048
  2. [THERAPHY UNSPECIFIED] [Concomitant]
  3. COUGH, COLD, FLU THERAPIES [Concomitant]
  4. . [Concomitant]
  5. . [Concomitant]

REACTIONS (1)
  - DEPRESSION [None]
